FAERS Safety Report 8044114-6 (Version None)
Quarter: 2012Q1

REPORT INFORMATION
  Report Type: 
  Country: None (occurrence: None)
  Receive Date: 20120113
  Receipt Date: 20120103
  Transmission Date: 20120608
  Serious: Yes (Other)
  Sender: FDA-Public Use
  Company Number: US-JNJFOC-20111105599

PATIENT
  Sex: Female
  Weight: 78.93 kg

DRUGS (9)
  1. TYLENOL COLD AND FLU PRODUCT [Suspect]
     Indication: OROPHARYNGEAL PAIN
     Route: 048
     Dates: start: 20111031, end: 20111031
  2. PROTONIX [Concomitant]
  3. MICROZIDE [Concomitant]
  4. ZANTAC [Concomitant]
     Indication: ABDOMINAL PAIN UPPER
     Dosage: OCCASIONAL USE
  5. HYDROCHLOROTHIAZIDE [Concomitant]
     Indication: HYPERTENSION
     Route: 065
  6. PREMARIN [Concomitant]
  7. HYDROCHLOROTHIAZIDE [Concomitant]
     Indication: FLUID RETENTION
     Route: 065
  8. FLEXERIL [Concomitant]
  9. ZANTAC [Concomitant]

REACTIONS (3)
  - NAUSEA [None]
  - OESOPHAGITIS [None]
  - ABDOMINAL PAIN UPPER [None]
